FAERS Safety Report 6528541-1 (Version None)
Quarter: 2010Q1

REPORT INFORMATION
  Report Type: 
  Country: None (occurrence: None)
  Receive Date: 20100106
  Receipt Date: 20091222
  Transmission Date: 20100710
  Serious: Yes (Hospitalization)
  Sender: FDA-Public Use
  Company Number: GB-ROCHE-657573

PATIENT
  Sex: Female
  Weight: 51 kg

DRUGS (3)
  1. HERCEPTIN [Suspect]
     Indication: BREAST CANCER
     Dosage: INFUSION. INDICATION REPORTED AS EARLY H2+ BREAST CANCER
     Route: 042
     Dates: start: 20081101, end: 20090909
  2. ACE INHIBITOR [Suspect]
     Indication: ACUTE CORONARY SYNDROME
     Route: 065
  3. BETA-BLOCKER [Concomitant]
     Indication: ACUTE CORONARY SYNDROME

REACTIONS (4)
  - ACUTE CORONARY SYNDROME [None]
  - HYPOTENSION [None]
  - MYOCARDITIS [None]
  - STRESS CARDIOMYOPATHY [None]
